FAERS Safety Report 20779218 (Version 2)
Quarter: 2022Q2

REPORT INFORMATION
  Report Type: Spontaneous
  Country: US (occurrence: US)
  Receive Date: 20220503
  Receipt Date: 20220520
  Transmission Date: 20220721
  Serious: Yes (Other)
  Sender: FDA-Public Use
  Company Number: US-GLENMARK PHARMACEUTICALS-2022GMK072006

PATIENT

DRUGS (1)
  1. OLMESARTAN MEDOXOMIL [Suspect]
     Active Substance: OLMESARTAN MEDOXOMIL
     Indication: Product used for unknown indication
     Dosage: 40 MILLIGRAM, OD
     Route: 048
     Dates: start: 20220322

REACTIONS (4)
  - Hallucination, visual [Unknown]
  - Dysuria [Unknown]
  - Memory impairment [Unknown]
  - Abdominal pain upper [Unknown]
